FAERS Safety Report 19431118 (Version 2)
Quarter: 2022Q3

REPORT INFORMATION
  Report Type: Spontaneous
  Country: CA (occurrence: CA)
  Receive Date: 20210617
  Receipt Date: 20220808
  Transmission Date: 20221026
  Serious: Yes (Other)
  Sender: FDA-Public Use
  Company Number: CA-PFIZER INC-2021664559

PATIENT
  Age: 80 Year
  Sex: Female

DRUGS (1)
  1. XELJANZ [Suspect]
     Active Substance: TOFACITINIB CITRATE
     Indication: Rheumatoid arthritis
     Dosage: 5 MG, 2X/DAY
     Route: 048
     Dates: start: 20150211

REACTIONS (5)
  - Cerebrovascular accident [Unknown]
  - Upper limb fracture [Unknown]
  - Impaired work ability [Unknown]
  - Mobility decreased [Unknown]
  - Synovitis [Unknown]

NARRATIVE: CASE EVENT DATE: 20180101
